FAERS Safety Report 5137067-1 (Version None)
Quarter: 2006Q4

REPORT INFORMATION
  Report Type: 
  Country: None (occurrence: None)
  Receive Date: 20061030
  Receipt Date: 20060515
  Transmission Date: 20070319
  Serious: Yes (Death, Congenital Anomaly)
  Sender: FDA-Public Use
  Company Number: PHBS2006CA07341

PATIENT
  Age: 1 Day
  Weight: 2.497 kg

DRUGS (3)
  1. PUREGON [Concomitant]
  2. FOLLICLE STIMULATING HORMONE, RECOMBINANT [Suspect]
     Route: 064
  3. FEMARA [Suspect]
     Dosage: MATERNAL DOSE: 2.5 MG/DAY FROM DAY 3 TO 7
     Route: 064

REACTIONS (2)
  - DRUG EXPOSURE BEFORE PREGNANCY [None]
  - TRISOMY 18 [None]
